FAERS Safety Report 8860658 (Version 1)
Quarter: 2012Q4

REPORT INFORMATION
  Report Type: Report from Study
  Country: US (occurrence: US)
  Receive Date: 20121025
  Receipt Date: 20121025
  Transmission Date: 20130627
  Serious: No
  Sender: FDA-Public Use
  Company Number: US-ABBOTT-12P-163-0908776-00

PATIENT
  Sex: Female

DRUGS (5)
  1. LUPRON DEPOT 3.75 MG [Suspect]
     Indication: MENORRHAGIA
     Dates: start: 20120123, end: 20120123
  2. ZYRTEC [Concomitant]
     Indication: PRODUCT USED FOR UNKNOWN INDICATION
  3. VALTREX [Concomitant]
     Indication: PRODUCT USED FOR UNKNOWN INDICATION
  4. NAPROXEN [Concomitant]
     Indication: PRODUCT USED FOR UNKNOWN INDICATION
  5. AMOXICILLIN [Concomitant]
     Indication: PRODUCT USED FOR UNKNOWN INDICATION

REACTIONS (3)
  - Metrorrhagia [Unknown]
  - Menstruation normal [Unknown]
  - Off label use [Not Recovered/Not Resolved]
